FAERS Safety Report 18524446 (Version 5)
Quarter: 2022Q4

REPORT INFORMATION
  Report Type: Report from Study
  Country: MX (occurrence: MX)
  Receive Date: 20201119
  Receipt Date: 20221128
  Transmission Date: 20230112
  Serious: Yes (Hospitalization, Other)
  Sender: FDA-Public Use
  Company Number: None

PATIENT
  Sex: Female
  Weight: 48 kg

DRUGS (9)
  1. CYCLOSPORINE [Suspect]
     Active Substance: CYCLOSPORINE
     Indication: Myelodysplastic syndrome
     Dosage: 0.5 DF, UNKNOWN (100 MG/ML)
     Route: 048
     Dates: start: 2016
  2. CYCLOSPORINE [Suspect]
     Active Substance: CYCLOSPORINE
     Indication: Aplasia pure red cell
     Dosage: 5 MG, Q12H
     Route: 048
  3. CYCLOSPORINE [Suspect]
     Active Substance: CYCLOSPORINE
     Dosage: UNK UNK, Q12H (0.5 TO 1.5ML)
     Route: 048
     Dates: start: 2016, end: 2019
  4. EXJADE [Suspect]
     Active Substance: DEFERASIROX
     Indication: Serum ferritin
     Dosage: 1 DOSAGE FORM, BID
     Route: 048
     Dates: start: 2018
  5. EXJADE [Suspect]
     Active Substance: DEFERASIROX
     Indication: Aplasia pure red cell
     Dosage: 1 DOSAGE FORM, Q12H (500MG)
     Route: 048
     Dates: start: 2018, end: 2020
  6. ELTROMBOPAG OLAMINE [Suspect]
     Active Substance: ELTROMBOPAG OLAMINE
     Indication: Platelet count decreased
     Dosage: 1 DOSAGE FORM, QD (50MG)
     Route: 048
     Dates: start: 2018, end: 2020
  7. ELTROMBOPAG OLAMINE [Suspect]
     Active Substance: ELTROMBOPAG OLAMINE
     Indication: Aplasia pure red cell
  8. RUXOLITINIB [Suspect]
     Active Substance: RUXOLITINIB
     Indication: Graft versus host disease
     Dosage: 1 DOSAGE FORM, Q12H (5MG)
     Route: 048
     Dates: start: 2019
  9. RUXOLITINIB [Suspect]
     Active Substance: RUXOLITINIB
     Dosage: 5 MG, QD
     Route: 048
     Dates: start: 2019

REACTIONS (8)
  - Venous thrombosis limb [Recovered/Resolved]
  - Graft versus host disease [Not Recovered/Not Resolved]
  - Myelodysplastic syndrome [Recovered/Resolved]
  - Hypothyroidism [Unknown]
  - Product prescribing error [Unknown]
  - Product use in unapproved indication [Recovered/Resolved]
  - Product prescribing issue [Unknown]
  - Off label use [Unknown]

NARRATIVE: CASE EVENT DATE: 20180101
